FAERS Safety Report 9976627 (Version 1)
Quarter: 2014Q1

REPORT INFORMATION
  Report Type: Report from Study
  Country: US (occurrence: US)
  Receive Date: 20140306
  Receipt Date: 20140306
  Transmission Date: 20141002
  Serious: No
  Sender: FDA-Public Use
  Company Number: US-ABBVIE-13P-163-1165900-00

PATIENT
  Age: 55 Year
  Sex: Female

DRUGS (6)
  1. HUMIRA [Suspect]
     Indication: CROHN^S DISEASE
     Dates: start: 20111122
  2. PAXIL [Concomitant]
     Indication: ANXIETY
     Dosage: AT BEDTIME
  3. ONE A DAY WOMEN^S [Concomitant]
     Indication: PRODUCT USED FOR UNKNOWN INDICATION
     Dosage: DAILY
  4. VITAMIN E [Concomitant]
     Indication: PRODUCT USED FOR UNKNOWN INDICATION
  5. FISH OIL OMEGA 3 [Concomitant]
     Indication: PRODUCT USED FOR UNKNOWN INDICATION
     Dosage: 1200/360MG, 3 DAILY
  6. CALCIUM VITAMIN D [Concomitant]
     Indication: PRODUCT USED FOR UNKNOWN INDICATION
     Dosage: 1200MG/1000IU DAILY

REACTIONS (2)
  - Cataract [Recovering/Resolving]
  - Injection site bruising [Recovering/Resolving]
